FAERS Safety Report 9688823 (Version 1)
Quarter: 2013Q4

REPORT INFORMATION
  Report Type: Spontaneous
  Country: US (occurrence: None)
  Receive Date: 20131113
  Receipt Date: 20131113
  Transmission Date: 20140711
  Serious: Yes (Death, Other)
  Sender: FDA-Public Use
  Company Number: ADR-2013-02058

PATIENT
  Age: 58 Year
  Sex: Female

DRUGS (2)
  1. BACLOFEN [Suspect]
     Indication: PAIN
     Dosage: 239.92 MCG/DAY
  2. DILAUDID [Suspect]
     Dosage: 0.39986 MG/DAY

REACTIONS (1)
  - Death [None]
